FAERS Safety Report 8966842 (Version 1)
Quarter: 2012Q4

REPORT INFORMATION
  Report Type: 
  Country: US (occurrence: US)
  Receive Date: 20121214
  Receipt Date: 20121214
  Transmission Date: 20130627
  Serious: Yes (Other)
  Sender: FDA-Public Use
  Company Number: CHPA2012US024712

PATIENT
  Age: 78 Year
  Sex: Male

DRUGS (8)
  1. EXCEDRIN EXTRA STRENGTH [Suspect]
     Indication: HEADACHE
     Dosage: 1 DF, PRN
     Route: 048
  2. EXCEDRIN EXTRA STRENGTH [Suspect]
     Dosage: 1 to 2 DF, QD
     Route: 048
  3. EXCEDRIN UNKNOWN [Suspect]
     Dosage: Unk, Unk
     Route: 048
  4. DRUG THERAPY NOS [Concomitant]
     Dosage: Unk, Unk
  5. RESVERATROL [Concomitant]
     Dosage: 5 PILLS, A DAY
     Dates: start: 2011
  6. RESVERATROL [Concomitant]
     Dosage: 10 PILLS, A DAY
  7. COUMADIN//WARFARIN SODIUM [Concomitant]
     Dosage: 2 Unk, A DAY
     Dates: start: 201205
  8. ANTIHYPERTENSIVES [Concomitant]
     Dosage: Unk, Unk

REACTIONS (1)
  - Pancreatic carcinoma [Unknown]
